FAERS Safety Report 23643470 (Version 1)
Quarter: 2024Q1

REPORT INFORMATION
  Report Type: Spontaneous
  Country: HR (occurrence: HR)
  Receive Date: 20240318
  Receipt Date: 20240318
  Transmission Date: 20240410
  Serious: Yes (Death, Other)
  Sender: FDA-Public Use
  Company Number: HR-JNJFOC-20240329577

PATIENT

DRUGS (3)
  1. DARZALEX [Suspect]
     Active Substance: DARATUMUMAB
     Indication: Plasma cell myeloma
     Route: 065
  2. REVLIMID [Suspect]
     Active Substance: LENALIDOMIDE
     Indication: Plasma cell myeloma
     Route: 065
  3. DEXAMETHASONE [Suspect]
     Active Substance: DEXAMETHASONE
     Indication: Plasma cell myeloma refractory
     Route: 065

REACTIONS (20)
  - Death [Fatal]
  - Gastroenteritis salmonella [Unknown]
  - Clostridium difficile colitis [Unknown]
  - Diverticulitis [Unknown]
  - Leishmaniasis [Unknown]
  - Pulmonary embolism [Unknown]
  - Mesenteric artery thrombosis [Unknown]
  - Deep vein thrombosis [Unknown]
  - Angina pectoris [Unknown]
  - Atrial fibrillation [Unknown]
  - Rhabdomyolysis [Unknown]
  - Polyneuropathy [Unknown]
  - Plasma cell myeloma [Unknown]
  - Neutropenia [Unknown]
  - Thrombocytopenia [Unknown]
  - Sepsis [Unknown]
  - Pneumonia [Unknown]
  - Hyperglycaemia [Unknown]
  - Anaemia [Unknown]
  - Infection [Unknown]
